FAERS Safety Report 15796588 (Version 1)
Quarter: 2019Q1

REPORT INFORMATION
  Report Type: Spontaneous
  Country: US (occurrence: US)
  Receive Date: 20190108
  Receipt Date: 20190108
  Transmission Date: 20190417
  Serious: Yes (Other)
  Sender: FDA-Public Use
  Company Number: US-COLGATE PALMOLIVE COMPANY-20190100001

PATIENT

DRUGS (3)
  1. TOM^S TP NAT ANTIPLAQUE + WHITENING [SW] FLUORIDE FREE PASTE PEPPERMIN [Suspect]
     Active Substance: COSMETICS
     Indication: DENTAL DISORDER PROPHYLAXIS
     Dosage: LESS THAN A PEA SIZE, BID
  2. ARMOUR THYROID [Concomitant]
     Active Substance: THYROID, PORCINE
  3. SIMPLY WHITE CLEAN MINT [Suspect]
     Active Substance: SODIUM FLUORIDE
     Indication: DENTAL DISORDER PROPHYLAXIS
     Dosage: LESS THAN A PEA SIZE, BID
     Dates: start: 20181230

REACTIONS (2)
  - Gastrointestinal disorder [Not Recovered/Not Resolved]
  - Diarrhoea [Not Recovered/Not Resolved]

NARRATIVE: CASE EVENT DATE: 2018
